FAERS Safety Report 14495674 (Version 1)
Quarter: 2018Q1

REPORT INFORMATION
  Report Type: Spontaneous
  Country: US (occurrence: US)
  Receive Date: 20180206
  Receipt Date: 20180206
  Transmission Date: 20180509
  Serious: No
  Sender: FDA-Public Use
  Company Number: US-B.I. PHARMACEUTICALS,INC./RIDGEFIELD-2018-BI-005867

PATIENT
  Sex: Male

DRUGS (1)
  1. TRADJENTA [Suspect]
     Active Substance: LINAGLIPTIN
     Indication: TYPE 2 DIABETES MELLITUS
     Dosage: 1DAILY;FRMSTRNGTH:5MG;FRMLTION:TABLETADMINISTRATIONCORRECT?NRACTION TAKEN WITH PRODUCT: NOT REPORTED
     Route: 065

REACTIONS (2)
  - Gastrooesophageal reflux disease [Unknown]
  - Blood glucose increased [Unknown]
